FAERS Safety Report 24811137 (Version 1)
Quarter: 2025Q1

REPORT INFORMATION
  Report Type: Spontaneous
  Country: US (occurrence: US)
  Receive Date: 20250106
  Receipt Date: 20250106
  Transmission Date: 20250408
  Serious: Yes (Death, Hospitalization, Other)
  Sender: NOVARTIS
  Company Number: US-002147023-NVSC2024US247942

PATIENT
  Age: 71 Year
  Sex: Male

DRUGS (5)
  1. LUTETIUM LU-177 VIPIVOTIDE TETRAXETAN [Suspect]
     Active Substance: LUTETIUM LU-177 VIPIVOTIDE TETRAXETAN
     Indication: Hormone-refractory prostate cancer
     Route: 065
     Dates: end: 202405
  2. LUTETIUM LU-177 VIPIVOTIDE TETRAXETAN [Suspect]
     Active Substance: LUTETIUM LU-177 VIPIVOTIDE TETRAXETAN
     Indication: Prostate cancer metastatic
     Route: 065
  3. LEUPROLIDE [Concomitant]
     Active Substance: LEUPROLIDE
     Indication: Prostate cancer
     Route: 065
  4. ENZALUTAMIDE [Concomitant]
     Active Substance: ENZALUTAMIDE
     Indication: Prostate cancer
     Route: 065
     Dates: start: 202207
  5. DOCETAXEL [Concomitant]
     Active Substance: DOCETAXEL
     Indication: Prostate cancer metastatic
     Route: 065
     Dates: end: 202311

REACTIONS (8)
  - Death [Fatal]
  - Prostate cancer metastatic [Unknown]
  - Malignant neoplasm progression [Unknown]
  - Nausea [Unknown]
  - Vomiting [Unknown]
  - Tachycardia [Unknown]
  - Hypotension [Unknown]
  - Dry mouth [Unknown]
